FAERS Safety Report 8006493-5 (Version None)
Quarter: 2011Q4

REPORT INFORMATION
  Report Type: 
  Country: None (occurrence: None)
  Receive Date: 20111226
  Receipt Date: 20111215
  Transmission Date: 20120403
  Serious: Yes (Hospitalization, Other)
  Sender: FDA-Public Use
  Company Number: PHEH2011US01553

PATIENT
  Sex: Female

DRUGS (10)
  1. OXYCODONE HCL [Concomitant]
     Dosage: 5 MG, Q4H
  2. MULTIVITAMIN [Concomitant]
  3. SANDOSTATIN [Suspect]
     Indication: NEOPLASM MALIGNANT
  4. SENOKOT [Concomitant]
  5. SANDOSTATIN [Suspect]
     Indication: CARCINOID SYNDROME
     Dosage: 20 MG, EVERY 4 WEEKS
  6. AFINITOR [Suspect]
     Indication: RENAL CELL CARCINOMA
     Dosage: 10 MG, UNK
     Dates: start: 20110609
  7. AFINITOR [Suspect]
     Dosage: 5 MG, DAILY
     Route: 048
     Dates: start: 20110629, end: 20111212
  8. FISH OIL [Concomitant]
     Dosage: 1000 MG, DAILY
  9. COLACE [Concomitant]
     Dosage: 1 DF, DAILY
  10. SPIRONOLACTONE [Concomitant]
     Indication: HAIR GROWTH ABNORMAL
     Dosage: 50 MG, BID

REACTIONS (12)
  - CANCER PAIN [None]
  - PYREXIA [None]
  - AMNESIA [None]
  - MALAISE [None]
  - OEDEMA PERIPHERAL [None]
  - DEPRESSION [None]
  - PAIN IN EXTREMITY [None]
  - CHEST PAIN [None]
  - CHILLS [None]
  - FEELING ABNORMAL [None]
  - ABDOMINAL DISCOMFORT [None]
  - DRUG INEFFECTIVE [None]
